FAERS Safety Report 19923010 (Version 1)
Quarter: 2021Q4

REPORT INFORMATION
  Report Type: Spontaneous
  Country: IT (occurrence: IT)
  Receive Date: 20211006
  Receipt Date: 20211006
  Transmission Date: 20220303
  Serious: Yes (Other)
  Sender: FDA-Public Use
  Company Number: IT-LUPIN PHARMACEUTICALS INC.-2021-18741

PATIENT
  Age: 12 Year
  Sex: Male

DRUGS (4)
  1. METHYLPHENIDATE [Suspect]
     Active Substance: METHYLPHENIDATE
     Indication: Attention deficit hyperactivity disorder
     Dosage: UNK UNK, QD, IMMEDIATE-RELEASE METHYLPHENIDATE PILL, FIRST ONCE PER DAY AND THEN TWICE PER DAY
     Route: 065
  2. METHYLPHENIDATE [Suspect]
     Active Substance: METHYLPHENIDATE
     Dosage: UNK UNK, BID,  IMMEDIATE-RELEASE METHYLPHENIDATE
     Route: 065
  3. METHYLPHENIDATE [Suspect]
     Active Substance: METHYLPHENIDATE
     Dosage: 0.5 MILLIGRAM/KILOGRAM, QD, DELAYED RELEASE METHYLPHENIDATE TO OPTIMIZE THE EFFICACY AND TO ELIMINAT
     Route: 065
  4. METHYLPHENIDATE [Suspect]
     Active Substance: METHYLPHENIDATE
     Dosage: 0.4 MILLIGRAM/KILOGRAM, QD, REDUCED TO THE EQUIVALENT OF 0.4 MG/KG/DOSE DUE POSSIBLE SIDE EFFECT
     Route: 065

REACTIONS (3)
  - Dyskinesia [Recovered/Resolved]
  - Tic [Recovered/Resolved]
  - Drug ineffective [Unknown]
